FAERS Safety Report 7354493-0 (Version None)
Quarter: 2011Q1

REPORT INFORMATION
  Report Type: 
  Country: None (occurrence: None)
  Receive Date: 20110316
  Receipt Date: 20110308
  Transmission Date: 20110831
  Serious: Yes (Hospitalization, Other)
  Sender: FDA-Public Use
  Company Number: JP-ASTELLAS-2011US000793

PATIENT
  Sex: Female

DRUGS (7)
  1. AMBISOME [Suspect]
     Indication: FUNGAL INFECTION
     Dosage: 5 MG/KG, UID/QD
     Route: 042
     Dates: start: 20110206, end: 20110212
  2. ITRIZOLE [Suspect]
     Indication: ANTIBIOTIC PROPHYLAXIS
     Dosage: 200 MG, UID/QD
     Route: 048
     Dates: start: 20110123, end: 20110212
  3. ALLELOCK [Concomitant]
     Indication: ECZEMA
     Dosage: 10 MG, UID/QD
     Route: 048
     Dates: start: 20110204, end: 20110212
  4. GRAN [Concomitant]
     Indication: NEUTROPENIA
     Dosage: 150 UG, UID/QD
     Route: 042
     Dates: start: 20110207, end: 20110215
  5. CRAVIT [Concomitant]
     Indication: ANTIBIOTIC PROPHYLAXIS
     Dosage: 500 MG, UID/QD
     Route: 048
     Dates: start: 20110123, end: 20110212
  6. FINIBAX [Concomitant]
     Indication: FEBRILE NEUTROPENIA
     Dosage: 1.5 MG, UID/QD
     Route: 042
     Dates: start: 20110204, end: 20110212
  7. CYTARABINE [Concomitant]
     Indication: ACUTE MYELOID LEUKAEMIA
     Dosage: UNK
     Route: 065
     Dates: start: 20110119

REACTIONS (3)
  - HYPOMAGNESAEMIA [None]
  - EPILEPSY [None]
  - HYPOKALAEMIA [None]
